FAERS Safety Report 6934120-4 (Version None)
Quarter: 2010Q3

REPORT INFORMATION
  Report Type: 
  Country: None (occurrence: None)
  Receive Date: 20100820
  Receipt Date: 20100812
  Transmission Date: 20110219
  Serious: Yes (Other)
  Sender: FDA-Public Use
  Company Number: US-PFIZER INC-2010090740

PATIENT
  Age: 76 Year
  Sex: Female
  Weight: 64.399 kg

DRUGS (10)
  1. LIPITOR [Suspect]
     Indication: BLOOD CHOLESTEROL INCREASED
     Dosage: 40 MG, DAILY
     Route: 048
     Dates: start: 20080101, end: 20090101
  2. LIPITOR [Suspect]
     Dosage: 20 MG, 1X/DAY
     Dates: start: 20090101
  3. LIPITOR [Suspect]
     Dosage: 40 MG, UNK
  4. ACETYLSALICYLIC ACID [Concomitant]
     Dosage: UNK
  5. VITAMIN B6 [Concomitant]
     Dosage: UNK
  6. RAMIPRIL [Concomitant]
     Indication: HYPERTENSION
     Dosage: 2.5 MG, DAILY
  7. PROCARDIA XL [Concomitant]
     Indication: HYPERTENSION
     Dosage: 60 MG, 2X/DAY
  8. ACETAMINOPHEN [Concomitant]
     Indication: HEADACHE
  9. VITAMIN E [Concomitant]
     Dosage: 100 MG, DAILY
  10. FISH OIL [Concomitant]
     Dosage: 1000 MG, DAILY

REACTIONS (3)
  - CHEST PAIN [None]
  - HEART RATE DECREASED [None]
  - LIVER DISORDER [None]
